FAERS Safety Report 11411285 (Version 2)
Quarter: 2015Q3

REPORT INFORMATION
  Report Type: Spontaneous
  Country: US (occurrence: US)
  Receive Date: 20150821
  Receipt Date: 20150903
  Transmission Date: 20151125
  Serious: No
  Sender: FDA-Public Use
  Company Number: US-ELI_LILLY_AND_COMPANY-US201005000621

PATIENT
  Age: 74 Year
  Sex: Female

DRUGS (7)
  1. HUMALOG [Suspect]
     Active Substance: INSULIN LISPRO
     Indication: TYPE 2 DIABETES MELLITUS
     Dosage: 10 U, 2/D
     Dates: start: 20100427
  2. LANTUS [Concomitant]
     Active Substance: INSULIN GLARGINE
  3. HUMALOG [Suspect]
     Active Substance: INSULIN LISPRO
     Dosage: 15 U, DAILY (1/D)
     Dates: start: 20100427
  4. HUMULIN 70/30 [Suspect]
     Active Substance: INSULIN HUMAN
  5. NOVOLIN [Concomitant]
     Active Substance: INSULIN HUMAN
     Dates: end: 20100426
  6. STARLIX [Concomitant]
     Active Substance: NATEGLINIDE
  7. BENAZEPRIL AND HYDROCHLOROTHIAZIDE [Concomitant]
     Active Substance: BENAZEPRIL HYDROCHLORIDE\HYDROCHLOROTHIAZIDE

REACTIONS (4)
  - Blood glucose increased [Unknown]
  - Tongue discolouration [Unknown]
  - Hypoaesthesia oral [Not Recovered/Not Resolved]
  - Rash [Unknown]

NARRATIVE: CASE EVENT DATE: 201002
